FAERS Safety Report 24948483 (Version 3)
Quarter: 2025Q1

REPORT INFORMATION
  Report Type: Report from Study
  Country: US (occurrence: US)
  Receive Date: 20250210
  Receipt Date: 20250324
  Transmission Date: 20250408
  Serious: Yes (Hospitalization)
  Sender: ACADIA PHARMACEUTICALS
  Company Number: US-ACADIA PHARMACEUTICALS INC.-ACA-2025-TRF-000869

PATIENT
  Sex: Female

DRUGS (1)
  1. DAYBUE [Suspect]
     Active Substance: TROFINETIDE
     Indication: Rett syndrome
     Dosage: 30 MILLILITER, BID
     Dates: start: 20231217

REACTIONS (5)
  - Nasopharyngitis [Unknown]
  - Influenza [Recovered/Resolved]
  - Gastrointestinal infection [Unknown]
  - Vomiting [Unknown]
  - Product dose omission issue [Recovered/Resolved]
